FAERS Safety Report 24974241 (Version 1)
Quarter: 2025Q1

REPORT INFORMATION
  Report Type: Spontaneous
  Country: US (occurrence: US)
  Receive Date: 20250217
  Receipt Date: 20250217
  Transmission Date: 20250409
  Serious: Yes (Hospitalization, Other)
  Sender: SANOFI AVENTIS
  Company Number: US-SA-2025SA042810

PATIENT
  Age: 68 Year
  Sex: Female

DRUGS (12)
  1. DUPIXENT [Suspect]
     Active Substance: DUPILUMAB
     Indication: Dermatitis atopic
     Dosage: 300 MG, QOW
     Route: 058
  2. ALBUTEROL SULFATE [Concomitant]
     Active Substance: ALBUTEROL SULFATE
  3. CARVEDILOL [Concomitant]
     Active Substance: CARVEDILOL
  4. DESONIDE [Concomitant]
     Active Substance: DESONIDE
  5. EUFLEXXA [Concomitant]
     Active Substance: HYALURONATE SODIUM
  6. MECLIZINE HYDROCHLORIDE [Concomitant]
     Active Substance: MECLIZINE HYDROCHLORIDE
  7. OZEMPIC [Concomitant]
     Active Substance: SEMAGLUTIDE
  8. SOLIFENACIN [SOLIFENACIN SUCCINATE] [Concomitant]
  9. SPIRONOLACTONE [Concomitant]
     Active Substance: SPIRONOLACTONE
  10. TRELEGY ELLIPTA [Concomitant]
     Active Substance: FLUTICASONE FUROATE\UMECLIDINIUM BROMIDE\VILANTEROL TRIFENATATE
  11. VALACYCLOVIR [Concomitant]
     Active Substance: VALACYCLOVIR HYDROCHLORIDE
  12. XIFAXAN [Concomitant]
     Active Substance: RIFAXIMIN

REACTIONS (20)
  - Liver disorder [Not Recovered/Not Resolved]
  - Rhabdomyolysis [Unknown]
  - Ascites [Unknown]
  - Encephalitis [Not Recovered/Not Resolved]
  - Diabetes mellitus [Not Recovered/Not Resolved]
  - Breast cancer [Recovered/Resolved]
  - Glaucoma [Not Recovered/Not Resolved]
  - Ovarian cyst [Unknown]
  - Dry skin [Not Recovered/Not Resolved]
  - Sleep disorder due to a general medical condition [Not Recovered/Not Resolved]
  - Depressed mood [Not Recovered/Not Resolved]
  - Secretion discharge [Not Recovered/Not Resolved]
  - Asthma [Not Recovered/Not Resolved]
  - Vitamin A deficiency [Not Recovered/Not Resolved]
  - Memory impairment [Not Recovered/Not Resolved]
  - Pruritus [Not Recovered/Not Resolved]
  - Vertigo [Not Recovered/Not Resolved]
  - Herpes virus infection [Not Recovered/Not Resolved]
  - Rash [Not Recovered/Not Resolved]
  - Dry eye [Not Recovered/Not Resolved]
